FAERS Safety Report 7663030 (Version 4)
Quarter: 2015Q4

REPORT INFORMATION
  Report Type: Spontaneous
  Country: US (occurrence: US)
  Receive Date: 20101110
  Receipt Date: 20151123
  Transmission Date: 20160305
  Serious: Yes (Life-Threatening, Other)
  Sender: FDA-Public Use
  Company Number: US-BAYER-201039922NA

PATIENT
  Age: 22 Year
  Sex: Female
  Weight: 63 kg

DRUGS (3)
  1. HYDROCODONE W/ACETAMINOPHEN [Concomitant]
     Active Substance: ACETAMINOPHEN\HYDROCODONE BITARTRATE
     Dosage: 5MG/500MG
  2. YAZ [Suspect]
     Active Substance: DROSPIRENONE\ETHINYL ESTRADIOL
     Indication: ACNE
     Dosage: UNK
     Dates: start: 2007, end: 200904
  3. YAZ [Suspect]
     Active Substance: DROSPIRENONE\ETHINYL ESTRADIOL
     Indication: ORAL CONTRACEPTION
     Dosage: UNK
     Route: 048
     Dates: start: 200704, end: 200810

REACTIONS (4)
  - Cerebral cyst [None]
  - Embolism arterial [None]
  - Simple partial seizures [None]
  - Cerebrovascular accident [None]

NARRATIVE: CASE EVENT DATE: 20081119
